FAERS Safety Report 13493762 (Version 2)
Quarter: 2017Q2

REPORT INFORMATION
  Report Type: Spontaneous
  Country: US (occurrence: US)
  Receive Date: 20170427
  Receipt Date: 20170518
  Transmission Date: 20170830
  Serious: Yes (Hospitalization, Other)
  Sender: FDA-Public Use
  Company Number: US-009507513-1704USA013487

PATIENT
  Sex: Male

DRUGS (1)
  1. KEYTRUDA [Suspect]
     Active Substance: PEMBROLIZUMAB
     Dosage: UNK
     Dates: start: 200511, end: 201603

REACTIONS (13)
  - Vomiting [Unknown]
  - Insomnia [Unknown]
  - Diabetes mellitus inadequate control [Unknown]
  - Malignant neoplasm progression [Unknown]
  - Adverse event [Unknown]
  - Proteinuria [Unknown]
  - Back pain [Unknown]
  - Glycosuria [Unknown]
  - Tachycardia [Unknown]
  - Dyspnoea exertional [Unknown]
  - Liver function test increased [Unknown]
  - Hyperglycaemia [Unknown]
  - Diarrhoea [Unknown]
